FAERS Safety Report 18729955 (Version 2)
Quarter: 2021Q1

REPORT INFORMATION
  Report Type: Spontaneous
  Country: US (occurrence: US)
  Receive Date: 20210112
  Receipt Date: 20210305
  Transmission Date: 20210419
  Serious: No
  Sender: FDA-Public Use
  Company Number: US-GLAXOSMITHKLINE-US2021002051

PATIENT
  Age: 76 Year
  Sex: Female

DRUGS (2)
  1. VENTOLIN HFA [Suspect]
     Active Substance: ALBUTEROL SULFATE
     Indication: RESPIRATION ABNORMAL
     Dosage: 1 PUFF(S), EVERY 3 HOURS
     Route: 055
     Dates: start: 202012
  2. VENTOLIN HFA [Suspect]
     Active Substance: ALBUTEROL SULFATE
     Indication: CHRONIC OBSTRUCTIVE PULMONARY DISEASE
     Dosage: 1 PUFF(S), PRN
     Route: 055
     Dates: start: 2019

REACTIONS (9)
  - Dyspnoea exertional [Unknown]
  - Productive cough [Unknown]
  - Sleep disorder due to a general medical condition [Unknown]
  - Fatigue [Unknown]
  - Condition aggravated [Unknown]
  - Drug ineffective [Unknown]
  - Dyspnoea [Unknown]
  - Middle insomnia [Unknown]
  - Intentional product misuse [Unknown]

NARRATIVE: CASE EVENT DATE: 202012
